FAERS Safety Report 21748433 (Version 1)
Quarter: 2022Q4

REPORT INFORMATION
  Report Type: Spontaneous
  Country: CA (occurrence: CA)
  Receive Date: 20221219
  Receipt Date: 20221219
  Transmission Date: 20230113
  Serious: Yes (Hospitalization, Other)
  Sender: FDA-Public Use
  Company Number: CA-GLAXOSMITHKLINE-CA2022AMR166078

PATIENT

DRUGS (1)
  1. BENLYSTA [Suspect]
     Active Substance: BELIMUMAB
     Indication: Systemic lupus erythematosus
     Dosage: UNK

REACTIONS (6)
  - Pain [Unknown]
  - Arthritis infective [Unknown]
  - Pneumonia [Unknown]
  - Cough [Unknown]
  - Rhinorrhoea [Unknown]
  - Increased bronchial secretion [Unknown]
